FAERS Safety Report 8163815-2 (Version None)
Quarter: 2012Q1

REPORT INFORMATION
  Report Type: 
  Country: None (occurrence: None)
  Receive Date: 20120224
  Receipt Date: 20120221
  Transmission Date: 20120608
  Serious: Yes (Death, Other)
  Sender: FDA-Public Use
  Company Number: US-PFIZER INC-2011152924

PATIENT
  Sex: Male

DRUGS (4)
  1. ALPRAZOLAM [Concomitant]
     Indication: ANXIETY
     Dosage: UNK
     Dates: start: 20080101, end: 20091007
  2. CHANTIX [Suspect]
     Indication: SMOKING CESSATION THERAPY
     Dosage: 1MG AND 0.5MG
     Dates: start: 20090826, end: 20091007
  3. METOPROLOL [Concomitant]
     Indication: HYPERTENSION
     Dosage: UNK
     Dates: start: 20080101, end: 20091007
  4. LIPITOR [Concomitant]
     Indication: BLOOD CHOLESTEROL INCREASED
     Dosage: UNK
     Dates: start: 20080101, end: 20091007

REACTIONS (5)
  - MOOD SWINGS [None]
  - INTENTIONAL OVERDOSE [None]
  - AGITATION [None]
  - COMPLETED SUICIDE [None]
  - ANXIETY [None]
